FAERS Safety Report 15249577 (Version 1)
Quarter: 2018Q3

REPORT INFORMATION
  Report Type: Spontaneous
  Country: CN (occurrence: CN)
  Receive Date: 20180807
  Receipt Date: 20180807
  Transmission Date: 20181010
  Serious: Yes (Other)
  Sender: FDA-Public Use
  Company Number: CN-PFIZER INC-2018310641

PATIENT
  Age: 67 Year
  Sex: Female
  Weight: 60 kg

DRUGS (5)
  1. MABTHERA [Suspect]
     Active Substance: RITUXIMAB
     Indication: THERAPEUTIC PROCEDURE
     Dosage: 400 MG, CYCLIC
  2. CYTOSAR [Suspect]
     Active Substance: CYTARABINE
     Indication: THERAPEUTIC PROCEDURE
     Dosage: 1.3 G, 1X/DAY
     Route: 041
     Dates: start: 20180510, end: 20180510
  3. CISPLATIN. [Suspect]
     Active Substance: CISPLATIN
     Indication: THERAPEUTIC PROCEDURE
     Dosage: 20 MG, 1X/DAY
     Route: 041
     Dates: start: 20180504, end: 20180508
  4. ETOPOSIDE. [Suspect]
     Active Substance: ETOPOSIDE
     Indication: THERAPEUTIC PROCEDURE
     Dosage: 40 MG, 1X/DAY
     Route: 041
     Dates: start: 20180504, end: 20180508
  5. METHYLPREDNISOLONE. [Suspect]
     Active Substance: METHYLPREDNISOLONE
     Indication: THERAPEUTIC PROCEDURE
     Dosage: 500 MG, CYCLIC

REACTIONS (12)
  - Pericardial effusion [Unknown]
  - Pyrexia [Recovering/Resolving]
  - Breath sounds abnormal [Unknown]
  - Bone marrow failure [Recovering/Resolving]
  - Rales [Unknown]
  - Computerised tomogram abnormal [Unknown]
  - Chills [Unknown]
  - Cough [Recovering/Resolving]
  - Anaemia [Unknown]
  - Productive cough [Recovering/Resolving]
  - Pleural effusion [Unknown]
  - Bronchitis chronic [Unknown]

NARRATIVE: CASE EVENT DATE: 20180511
